FAERS Safety Report 6120017-9 (Version None)
Quarter: 2009Q1

REPORT INFORMATION
  Report Type: 
  Country: None (occurrence: None)
  Receive Date: 20090316
  Receipt Date: 20090304
  Transmission Date: 20090719
  Serious: Yes (Hospitalization, Other)
  Sender: FDA-Public Use
  Company Number: DK-PFIZER INC-2009153260

PATIENT

DRUGS (6)
  1. LYRICA [Suspect]
     Indication: ANXIETY
     Dosage: 150 MG, 3X/DAY
     Dates: start: 20071201, end: 20081001
  2. LYRICA [Suspect]
     Dosage: 225 MG DAILY
     Dates: start: 20080101
  3. LYRICA [Suspect]
     Dosage: 75MG DAILY
     Dates: end: 20090201
  4. AKARIN [Concomitant]
     Indication: ANXIETY
     Dosage: 40 MG, 1X/DAY
     Dates: start: 20081001
  5. NEXIUM [Concomitant]
     Indication: GASTROOESOPHAGEAL REFLUX DISEASE
     Dosage: 40 MG, 1X/DAY
     Dates: start: 20070101, end: 20090101
  6. TRADOLAN [Concomitant]
     Indication: PAIN
     Dosage: UNK
     Dates: start: 20070101, end: 20090101

REACTIONS (4)
  - ACTIVITIES OF DAILY LIVING IMPAIRED [None]
  - FALL [None]
  - HYPERHIDROSIS [None]
  - SYNCOPE [None]
